FAERS Safety Report 17161908 (Version 1)
Quarter: 2019Q4

REPORT INFORMATION
  Report Type: Spontaneous
  Country: DE (occurrence: DE)
  Receive Date: 20191217
  Receipt Date: 20191217
  Transmission Date: 20200122
  Serious: Yes (Hospitalization)
  Sender: FDA-Public Use
  Company Number: DE-SUN PHARMACEUTICAL INDUSTRIES LTD-2019RR-230823

PATIENT
  Age: 70 Year
  Sex: Male

DRUGS (20)
  1. HYDROCHLOROTHIAZID [Concomitant]
     Active Substance: HYDROCHLOROTHIAZIDE
     Indication: PRODUCT USED FOR UNKNOWN INDICATION
     Dosage: DAILY DOSE: 12.5 MG MILLIGRAM(S) EVERY DAY
     Route: 065
     Dates: start: 20161205, end: 20161215
  2. TOREM [Concomitant]
     Active Substance: TORSEMIDE
     Dosage: 5MG
     Route: 065
     Dates: start: 20161208, end: 20161213
  3. RAMIPRIL. [Concomitant]
     Active Substance: RAMIPRIL
     Dosage: DAILY DOSE: 5 MG MILLIGRAM(S) EVERY DAY
     Route: 065
  4. PIPERACILLIN AND TAZOBACTAM [Concomitant]
     Active Substance: PIPERACILLIN SODIUM\TAZOBACTAM SODIUM
     Indication: PRODUCT USED FOR UNKNOWN INDICATION
     Dosage: DAILY DOSE: 13.5 G GRAM(S) EVERY DAY
     Route: 041
  5. JONOSTERIL [Concomitant]
     Indication: PRODUCT USED FOR UNKNOWN INDICATION
     Dosage: DAILY DOSE: 1000 ML MILLILITRE(S) EVERY DAY
     Route: 041
     Dates: start: 20161205, end: 20161218
  6. PANTOZOL [Concomitant]
     Active Substance: PANTOPRAZOLE SODIUM
     Indication: PRODUCT USED FOR UNKNOWN INDICATION
     Dosage: DAILY DOSE: 20 MG MILLIGRAM(S) EVERY DAY
     Route: 065
  7. TOREM [Concomitant]
     Active Substance: TORSEMIDE
     Indication: PRODUCT USED FOR UNKNOWN INDICATION
     Dosage: DAILY DOSE: 20 MG MILLIGRAM(S) EVERY DAY
     Route: 065
     Dates: start: 20161214, end: 20161220
  8. ABRAXANE [Suspect]
     Active Substance: PACLITAXEL
     Indication: PANCREATIC CARCINOMA METASTATIC
     Dosage: NOT PROVIDED
     Route: 041
  9. RAMIPRIL. [Concomitant]
     Active Substance: RAMIPRIL
     Indication: PRODUCT USED FOR UNKNOWN INDICATION
     Dosage: DAILY DOSE: 12.5 MG MILLIGRAM(S) EVERY DAY
     Route: 065
  10. ASA [Concomitant]
     Active Substance: ASPIRIN
     Indication: PRODUCT USED FOR UNKNOWN INDICATION
     Dosage: DAILY DOSE: 100 MG MILLIGRAM(S) EVERY DAY
     Route: 065
  11. APIDRA [Concomitant]
     Active Substance: INSULIN GLULISINE
     Indication: PRODUCT USED FOR UNKNOWN INDICATION
     Dosage: NOT PROVIDED ()
     Route: 065
  12. BISOPROLOL [Concomitant]
     Active Substance: BISOPROLOL
     Indication: PRODUCT USED FOR UNKNOWN INDICATION
     Dosage: DAILY DOSE: 5 MG MILLIGRAM(S) EVERY DAY
     Route: 065
  13. NOVAMINSULFON [Concomitant]
     Active Substance: METAMIZOLE
     Indication: PRODUCT USED FOR UNKNOWN INDICATION
     Dosage: DAILY DOSE: 2000 MG MILLIGRAM(S) EVERY DAY
     Route: 065
     Dates: start: 20161208, end: 20161220
  14. BIFITERAL [Concomitant]
     Active Substance: LACTULOSE
     Indication: PRODUCT USED FOR UNKNOWN INDICATION
     Dosage: NOT PROVIDED
     Route: 065
     Dates: start: 20161213, end: 20161220
  15. OXAZEPAM. [Concomitant]
     Active Substance: OXAZEPAM
     Indication: PRODUCT USED FOR UNKNOWN INDICATION
     Dosage: DAILY DOSE: 20 MG MILLIGRAM(S) EVERY DAY
     Route: 065
  16. NACL [Concomitant]
     Active Substance: SODIUM CHLORIDE
     Indication: PRODUCT USED FOR UNKNOWN INDICATION
     Dosage: ()
     Route: 041
  17. FRAXIPARIN [Concomitant]
     Active Substance: NADROPARIN CALCIUM
     Indication: PRODUCT USED FOR UNKNOWN INDICATION
     Dosage: DAILY DOSE: 0.3 ML MILLILITRE(S) EVERY DAY
     Route: 058
  18. LEVEMIR [Concomitant]
     Active Substance: INSULIN DETEMIR
     Indication: PRODUCT USED FOR UNKNOWN INDICATION
     Dosage: ()
     Route: 065
  19. GEMCITABINE. [Suspect]
     Active Substance: GEMCITABINE
     Indication: PANCREATIC CARCINOMA METASTATIC
     Dosage: NOT PROVIDED
     Route: 065
  20. LYRICA [Concomitant]
     Active Substance: PREGABALIN
     Indication: PRODUCT USED FOR UNKNOWN INDICATION
     Dosage: DAILY DOSE: 50 MG MILLIGRAM(S) EVERY DAY
     Route: 065

REACTIONS (2)
  - Hepatic failure [Recovered/Resolved]
  - Bronchitis bacterial [Recovered/Resolved]

NARRATIVE: CASE EVENT DATE: 20161125
